FAERS Safety Report 8712205 (Version 2)
Quarter: 2012Q4

REPORT INFORMATION
  Report Type: 
  Country: US (occurrence: US)
  Receive Date: 20120807
  Receipt Date: 20120830
  Transmission Date: 20130627
  Serious: Yes (Hospitalization, Other)
  Sender: FDA-Public Use
  Company Number: US-GILEAD-2012-0059190

PATIENT
  Age: 59 None
  Sex: Male

DRUGS (1)
  1. LETAIRIS [Suspect]
     Indication: PRODUCT USED FOR UNKNOWN INDICATION
     Dosage: 5 mg, UNK
     Route: 048
     Dates: start: 20120717

REACTIONS (5)
  - Cellulitis [Unknown]
  - Ascites [Unknown]
  - Syncope [Unknown]
  - Hepatic encephalopathy [None]
  - Lethargy [None]
